FAERS Safety Report 5159416-0 (Version None)
Quarter: 2006Q4

REPORT INFORMATION
  Report Type: 
  Country: None (occurrence: None)
  Receive Date: 20061122
  Receipt Date: 20061122
  Transmission Date: 20070319
  Serious: Yes (Other)
  Sender: FDA-Public Use
  Company Number: None

PATIENT
  Age: 65 Year
  Sex: Male

DRUGS (4)
  1. REVLIMID [Suspect]
     Indication: AMYLOIDOSIS
     Dosage: 15MG DAILY PO
     Route: 048
     Dates: start: 20061011, end: 20061106
  2. LOMOTIL [Concomitant]
  3. PROCRIT [Concomitant]
  4. REMERON [Concomitant]

REACTIONS (2)
  - MALNUTRITION [None]
  - PNEUMONIA [None]
